FAERS Safety Report 14324695 (Version 1)
Quarter: 2017Q4

REPORT INFORMATION
  Report Type: Spontaneous
  Country: US (occurrence: US)
  Receive Date: 20171226
  Receipt Date: 20171226
  Transmission Date: 20180321
  Serious: No
  Sender: FDA-Public Use
  Company Number: None

PATIENT
  Age: 51 Year
  Sex: Male
  Weight: 72.58 kg

DRUGS (1)
  1. FENTANYL. [Suspect]
     Active Substance: FENTANYL
     Dosage: DOSE - 75 MCG/PATCH?FREQUENCY - 1 Q 72
     Route: 062
     Dates: start: 201707, end: 20171120

REACTIONS (1)
  - Application site rash [None]
